FAERS Safety Report 18618095 (Version 4)
Quarter: 2023Q4

REPORT INFORMATION
  Report Type: Report from Study
  Country: AT (occurrence: AT)
  Receive Date: 20201215
  Receipt Date: 20231215
  Transmission Date: 20240110
  Serious: Yes (Hospitalization)
  Sender: FDA-Public Use
  Company Number: AT-ROCHE-2518850

PATIENT
  Age: 57 Year
  Sex: Female
  Weight: 86 kg

DRUGS (31)
  1. PACLITAXEL [Suspect]
     Active Substance: PACLITAXEL
     Indication: Breast cancer
     Dosage: 151.26 MILLIGRAM, QW
     Route: 042
     Dates: start: 20191014, end: 20191014
  2. TRASTUZUMAB [Suspect]
     Active Substance: TRASTUZUMAB
     Indication: Breast cancer
     Dosage: 704 MILLIGRAM, Q3W (MOST RECENT DOSE PRIOR TO THE EVENT: 28/NOV/2019)
     Route: 042
     Dates: start: 20191014, end: 20191014
  3. TRASTUZUMAB [Suspect]
     Active Substance: TRASTUZUMAB
     Indication: HER2 positive breast cancer
  4. PERJETA [Suspect]
     Active Substance: PERTUZUMAB
     Indication: Breast cancer
     Dosage: 840 MILLIGRAM, Q3W (MOST RECENT DOSE PRIOR TO THE EVENT: 06/NOV/2019)
     Route: 042
     Dates: start: 20191014, end: 20191014
  5. PERJETA [Suspect]
     Active Substance: PERTUZUMAB
     Indication: HER2 positive breast cancer
  6. ABRAXANE [Suspect]
     Active Substance: PACLITAXEL
     Indication: HER2 positive breast cancer
     Dosage: 151.26 MILLIGRAM, QW
     Route: 042
     Dates: start: 20191014, end: 20191014
  7. ABRAXANE [Suspect]
     Active Substance: PACLITAXEL
     Dosage: 186.31 MILLIGRAM, QW (MOST RECENT DOSE RECEIVED ON 27/JAN/2020)
     Route: 042
     Dates: start: 20200103
  8. Paspertin [Concomitant]
     Dosage: UNK(ONGOING = CHECKED)
     Route: 065
     Dates: start: 20191015
  9. VITAMINS WITH MINERALS [Concomitant]
     Active Substance: MINERALS\VITAMINS
     Dosage: UNK(ONGOING = CHECKED)
     Route: 065
  10. VENLAFAXINE HYDROCHLORIDE [Concomitant]
     Active Substance: VENLAFAXINE HYDROCHLORIDE
     Dosage: UNK(ONGOING = CHECKED)
     Route: 065
  11. ALVESCO [Concomitant]
     Active Substance: CICLESONIDE
     Dosage: UNK(ONGOING = CHECKED)
     Route: 065
  12. Acemin [Concomitant]
     Dosage: UNK(ONGOING = CHECKED
     Route: 065
  13. DILTIAZEM [Concomitant]
     Active Substance: DILTIAZEM
     Dosage: UNK(ONGOING = CHECKED)
     Route: 065
  14. DEXAMETHASONE [Concomitant]
     Active Substance: DEXAMETHASONE
     Dosage: UNK(ONGOING = CHECKED)
     Route: 065
     Dates: start: 20191021
  15. KYTRIL [Concomitant]
     Active Substance: GRANISETRON HYDROCHLORIDE
     Dosage: UNK(ONGOING = CHECKED)
     Route: 065
     Dates: start: 20191014
  16. Novalgin [Concomitant]
     Dosage: UNK(ONGOING = CHECKED)
     Route: 065
     Dates: start: 20191015
  17. LOPERAMIDE HYDROCHLORIDE [Concomitant]
     Active Substance: LOPERAMIDE HYDROCHLORIDE
     Indication: Diarrhoea
     Dosage: UNK(ONGOING = CHECKED)
     Route: 065
     Dates: start: 20191015
  18. TRAZODONE HYDROCHLORIDE [Concomitant]
     Active Substance: TRAZODONE HYDROCHLORIDE
     Dosage: UNK(ONGOING = CHECKED)
     Route: 065
  19. POLYETHYLENE GLYCOL 3350\POTASSIUM CHLORIDE\SODIUM BICARBONATE\SODIUM [Concomitant]
     Active Substance: POLYETHYLENE GLYCOL 3350\POTASSIUM CHLORIDE\SODIUM BICARBONATE\SODIUM CHLORIDE
     Dosage: UNK(ONGOING = CHECKED)
     Route: 065
     Dates: start: 20191015
  20. OLODATEROL HYDROCHLORIDE\TIOTROPIUM BROMIDE MONOHYDRATE [Concomitant]
     Active Substance: OLODATEROL HYDROCHLORIDE\TIOTROPIUM BROMIDE MONOHYDRATE
     Dosage: UNK(ONGOING = CHECKED)
     Route: 065
  21. PANTOPRAZOLE SODIUM [Concomitant]
     Active Substance: PANTOPRAZOLE SODIUM
     Dosage: UNK(ONGOING = CHECKED)
     Route: 065
  22. RANITIDINE HYDROCHLORIDE [Concomitant]
     Active Substance: RANITIDINE HYDROCHLORIDE
     Dosage: UNK(ONGOING = CHECKED)
     Route: 065
     Dates: start: 20191014
  23. SIMVASTATIN [Concomitant]
     Active Substance: SIMVASTATIN
     Dosage: UNK(ONGOING = CHECKED)
     Route: 065
  24. PASSEDAN [Concomitant]
     Dosage: UNK(ONGOING = CHECKED)
     Route: 065
     Dates: start: 20191010
  25. BEROTEC [Concomitant]
     Active Substance: FENOTEROL HYDROBROMIDE
     Dosage: UNK(ONGOING = CHECKED)
     Route: 065
  26. PREDNISOLONE [Concomitant]
     Active Substance: PREDNISOLONE
     Dosage: UNK(ONGOING = CHECKED)
     Route: 065
  27. BISOPROLOL FUMARATE [Concomitant]
     Active Substance: BISOPROLOL FUMARATE
     Dosage: UNK(ONGOING = CHECKED)
     Route: 065
  28. ROFLUMILAST [Concomitant]
     Active Substance: ROFLUMILAST
     Dosage: UNK(ONGOING = CHECKED)
     Route: 065
  29. DIMETHINDENE [Concomitant]
     Active Substance: DIMETHINDENE
     Dosage: UNK(ONGOING = CHECKED)
     Route: 065
     Dates: start: 20191014
  30. DEXAMETHASONE [Concomitant]
     Active Substance: DEXAMETHASONE
     Indication: Fatigue
     Dosage: ONGOING = NOT CHECKED
     Route: 065
     Dates: start: 20220818
  31. BECLOMETHASONE DIPROPIONATE\FORMOTEROL FUMARATE\GLYCOPYRROLATE [Concomitant]
     Active Substance: BECLOMETHASONE DIPROPIONATE\FORMOTEROL FUMARATE\GLYCOPYRROLATE
     Dosage: ONGOING = CHECKED
     Route: 065

REACTIONS (2)
  - C-reactive protein increased [Recovered/Resolved]
  - Skin toxicity [Recovered/Resolved]

NARRATIVE: CASE EVENT DATE: 20191212
